FAERS Safety Report 26199275 (Version 1)
Quarter: 2025Q4

REPORT INFORMATION
  Report Type: Spontaneous
  Country: GB (occurrence: GB)
  Receive Date: 20251225
  Receipt Date: 20251225
  Transmission Date: 20260117
  Serious: Yes (Other)
  Sender: TEVA
  Company Number: None

PATIENT
  Age: 75 Year
  Sex: Male
  Weight: 65 kg

DRUGS (1)
  1. DOXAZOSIN [Suspect]
     Active Substance: DOXAZOSIN MESYLATE
     Indication: Benign prostatic hyperplasia
     Route: 065
     Dates: start: 20251210, end: 20251212

REACTIONS (7)
  - Joint swelling [Not Recovered/Not Resolved]
  - Medication error [Unknown]
  - Peripheral swelling [Not Recovered/Not Resolved]
  - Syncope [Recovered/Resolved]
  - Muscular weakness [Recovering/Resolving]
  - Peripheral swelling [Not Recovered/Not Resolved]
  - Dizziness [Recovered/Resolved]

NARRATIVE: CASE EVENT DATE: 20251210
